FAERS Safety Report 16445711 (Version 2)
Quarter: 2019Q3

REPORT INFORMATION
  Report Type: Spontaneous
  Country: US (occurrence: US)
  Receive Date: 20190618
  Receipt Date: 20190816
  Transmission Date: 20191004
  Serious: No
  Sender: FDA-Public Use
  Company Number: US-PFIZER INC-2019257528

PATIENT
  Age: 71 Year
  Sex: Female
  Weight: 73.48 kg

DRUGS (1)
  1. GABAPENTIN. [Suspect]
     Active Substance: GABAPENTIN
     Dosage: 300 MG, 3X/DAY
     Route: 048
     Dates: start: 20190114, end: 20190321

REACTIONS (4)
  - Gingival erythema [Recovering/Resolving]
  - Gingival bleeding [Recovering/Resolving]
  - Stomatitis [Unknown]
  - Feeling abnormal [Not Recovered/Not Resolved]
